FAERS Safety Report 10176843 (Version 1)
Quarter: 2014Q2

REPORT INFORMATION
  Report Type: Spontaneous
  Country: US (occurrence: None)
  Receive Date: 20140515
  Receipt Date: 20140515
  Transmission Date: 20141212
  Serious: Yes (Hospitalization)
  Sender: FDA-Public Use
  Company Number: None

PATIENT
  Age: 63 Year
  Sex: Female
  Weight: 121 kg

DRUGS (12)
  1. NAPROSYN [Suspect]
     Indication: ARTHRITIS
     Dosage: CHRONIC 250MG QD ORAL
     Route: 048
  2. MOTRIN [Suspect]
     Indication: ARTHRITIS
     Dosage: CHRONIC PRN/AS NEEDED ORAL
     Route: 048
  3. XANAX [Concomitant]
  4. LIDOCAINE PATCH [Concomitant]
  5. LISINOPRIL [Concomitant]
  6. ATARAX [Concomitant]
  7. SINGULAIR [Concomitant]
  8. PROVENTIL INHALER [Concomitant]
  9. SYNTHROID [Concomitant]
  10. LASIX [Concomitant]
  11. KCL [Concomitant]
  12. MUCINEX [Concomitant]

REACTIONS (1)
  - Gastrointestinal haemorrhage [None]
